FAERS Safety Report 7272252-4 (Version None)
Quarter: 2011Q1

REPORT INFORMATION
  Report Type: 
  Country: None (occurrence: None)
  Receive Date: 20110203
  Receipt Date: 20110124
  Transmission Date: 20110831
  Serious: Yes (Hospitalization)
  Sender: FDA-Public Use
  Company Number: PHHO2010US11531

PATIENT
  Sex: Female

DRUGS (3)
  1. COUMADIN [Concomitant]
  2. STI571/CGP57148B [Suspect]
     Indication: PULMONARY ARTERIAL HYPERTENSION
     Dosage: DOSE BLINDED
     Route: 048
     Dates: start: 20100722
  3. LOVENOX [Suspect]

REACTIONS (10)
  - MUSCULOSKELETAL CHEST PAIN [None]
  - ABDOMINAL WALL HAEMATOMA [None]
  - HAEMOGLOBIN DECREASED [None]
  - ATRIAL FLUTTER [None]
  - CHEST PAIN [None]
  - BACK PAIN [None]
  - PAIN IN EXTREMITY [None]
  - PNEUMOTHORAX [None]
  - HAEMATOCRIT DECREASED [None]
  - PLEURAL EFFUSION [None]
